FAERS Safety Report 4569225-9 (Version None)
Quarter: 2005Q1

REPORT INFORMATION
  Report Type: 
  Country: None (occurrence: None)
  Receive Date: 20050203
  Receipt Date: 20050128
  Transmission Date: 20050727
  Serious: Yes (Other)
  Sender: FDA-Public Use
  Company Number: US-BRISTOL-MYERS SQUIBB COMPANY-12842696

PATIENT

DRUGS (1)
  1. TEQUIN [Suspect]

REACTIONS (1)
  - HYPERGLYCAEMIA [None]
